FAERS Safety Report 25351706 (Version 1)
Quarter: 2025Q2

REPORT INFORMATION
  Report Type: Report from Study
  Country: US (occurrence: US)
  Receive Date: 20250523
  Receipt Date: 20250523
  Transmission Date: 20250716
  Serious: Yes (Hospitalization, Other)
  Sender: ACADIA PHARMACEUTICALS
  Company Number: US-ACADIA PHARMACEUTICALS INC.-ACA-2025-PIM-006078

PATIENT
  Age: 76 Year
  Sex: Female

DRUGS (8)
  1. NUPLAZID [Suspect]
     Active Substance: PIMAVANSERIN TARTRATE
     Indication: Parkinson^s disease
     Dosage: 34 MILLIGRAM, QD
     Route: 048
     Dates: start: 20250422
  2. DONEPEZIL [Concomitant]
     Active Substance: DONEPEZIL
  3. FUROSEMIDE [Concomitant]
     Active Substance: FUROSEMIDE
  4. ATORVASTATIN [Concomitant]
     Active Substance: ATORVASTATIN
  5. ROPINIROLE [Concomitant]
     Active Substance: ROPINIROLE
  6. AMLODIPINE [Concomitant]
     Active Substance: AMLODIPINE BESYLATE
  7. CARBIDOPA\LEVODOPA [Concomitant]
     Active Substance: CARBIDOPA\LEVODOPA
  8. LOSARTAN [Concomitant]
     Active Substance: LOSARTAN

REACTIONS (3)
  - Pneumonia [Recovered/Resolved]
  - Sepsis [Recovered/Resolved]
  - Body temperature decreased [Recovered/Resolved]

NARRATIVE: CASE EVENT DATE: 20250429
